FAERS Safety Report 4885229-0 (Version None)
Quarter: 2005Q4

REPORT INFORMATION
  Report Type: 
  Country: None (occurrence: None)
  Receive Date: 20051216
  Receipt Date: 20051107
  Transmission Date: 20060501
  Serious: No
  Sender: FDA-Public Use
  Company Number: BDI-007708

PATIENT
  Age: 72 Year
  Sex: Male

DRUGS (2)
  1. MULTIHANCE [Suspect]
     Indication: PAIN
     Dosage: 15 MGL ONCE IV
     Route: 042
     Dates: start: 20051026, end: 20051026
  2. MULTIHANCE [Suspect]
     Indication: PAIN
     Dosage: 10 ML ONCE IV
     Route: 042
     Dates: start: 20051026, end: 20051026

REACTIONS (2)
  - NAUSEA [None]
  - VOMITING [None]
